FAERS Safety Report 5673963-4 (Version None)
Quarter: 2008Q1

REPORT INFORMATION
  Report Type: 
  Country: None (occurrence: None)
  Receive Date: 20080317
  Receipt Date: 20080229
  Transmission Date: 20080703
  Serious: Yes (Other)
  Sender: FDA-Public Use
  Company Number: 2008JP001111

PATIENT
  Age: 42 Year
  Sex: Male

DRUGS (4)
  1. FUNGUARD(MICAFUNGIN) [Suspect]
     Dosage: 150 MG, UNKNOWN/D, IV DRIP
     Route: 041
     Dates: start: 20080104, end: 20080113
  2. OMEPRAZOLE [Suspect]
     Dosage: 40 MG, UNKNOWN/D, IV DRIP
     Route: 041
     Dates: start: 20071228, end: 20080117
  3. VANCOMYCIN [Suspect]
     Dosage: 1 G, UNKNOWN/D,IV DRIP
     Route: 041
     Dates: start: 20080104, end: 20080112
  4. TIENAM(IMIPENEM, CILASTATIN SODIUM) INJECTION [Suspect]
     Dosage: 1.5 G, UNKNOWN/D, IV DRIP
     Route: 041
     Dates: start: 20080105, end: 20080116

REACTIONS (1)
  - DRUG ERUPTION [None]
